FAERS Safety Report 11860562 (Version 3)
Quarter: 2016Q1

REPORT INFORMATION
  Report Type: Spontaneous
  Country: US (occurrence: US)
  Receive Date: 20151222
  Receipt Date: 20160129
  Transmission Date: 20160526
  Serious: Yes (Other)
  Sender: FDA-Public Use
  Company Number: US-UNITED THERAPEUTICS-UNT-2015-015363

PATIENT
  Sex: Male
  Weight: 100.68 kg

DRUGS (3)
  1. ORENITRAM [Suspect]
     Active Substance: TREPROSTINIL
     Indication: PULMONARY HYPERTENSION
     Dosage: 1 MG, TID
     Route: 048
     Dates: start: 20150715
  2. ORENITRAM [Suspect]
     Active Substance: TREPROSTINIL
     Dosage: 3 MG, TID
     Route: 048
  3. ORENITRAM [Suspect]
     Active Substance: TREPROSTINIL
     Dosage: 3 MG, TID
     Route: 048

REACTIONS (8)
  - Liver function test abnormal [Unknown]
  - Ocular discomfort [Unknown]
  - Myalgia [Unknown]
  - Drug dose omission [Unknown]
  - Amnesia [Unknown]
  - Muscle spasms [Unknown]
  - Feeling cold [Unknown]
  - Oedema [Unknown]

NARRATIVE: CASE EVENT DATE: 2015
